FAERS Safety Report 16693449 (Version 10)
Quarter: 2021Q3

REPORT INFORMATION
  Report Type: Report from Study
  Country: SI (occurrence: SI)
  Receive Date: 20190812
  Receipt Date: 20210928
  Transmission Date: 20211014
  Serious: Yes (Life-Threatening, Hospitalization)
  Sender: FDA-Public Use
  Company Number: PHHO2019SI008077

PATIENT
  Age: 68 Year
  Sex: Male
  Weight: 83 kg

DRUGS (5)
  1. TRAMETINIB [Suspect]
     Active Substance: TRAMETINIB
     Dosage: UNK, DOSE REDUCED
     Route: 048
     Dates: start: 20190829
  2. PARACETAMOL [Concomitant]
     Active Substance: ACETAMINOPHEN
     Indication: PYREXIA
     Dosage: UNK
     Route: 065
     Dates: start: 20190731, end: 20190802
  3. TRAMETINIB [Suspect]
     Active Substance: TRAMETINIB
     Indication: MALIGNANT MELANOMA
     Dosage: 2 MG, QD
     Route: 048
     Dates: start: 20190712, end: 20190801
  4. DABRAFENIB [Suspect]
     Active Substance: DABRAFENIB
     Indication: MALIGNANT MELANOMA
     Dosage: 150 MG, BID
     Route: 048
     Dates: start: 20190712, end: 20190801
  5. DABRAFENIB [Suspect]
     Active Substance: DABRAFENIB
     Dosage: UNK, DOSE REDUCED
     Route: 048
     Dates: start: 20190829

REACTIONS (1)
  - Pneumonia aspiration [Recovered/Resolved]

NARRATIVE: CASE EVENT DATE: 20190802
